FAERS Safety Report 13269181 (Version 3)
Quarter: 2017Q4

REPORT INFORMATION
  Report Type: Spontaneous
  Country: US (occurrence: US)
  Receive Date: 20170224
  Receipt Date: 20171031
  Transmission Date: 20180320
  Serious: Yes (Other)
  Sender: FDA-Public Use
  Company Number: US-TARO-2017TAR00088

PATIENT
  Sex: Female
  Weight: 58.5 kg

DRUGS (4)
  1. PHENYTOIN SODIUM EXTENDED [Suspect]
     Active Substance: PHENYTOIN SODIUM
     Indication: EPILEPSY
     Dosage: 4 PILLS AT NIGHT (TOTAL OF 400MG)
     Route: 048
     Dates: start: 201701
  2. TOPAMAX [Concomitant]
     Active Substance: TOPIRAMATE
     Dosage: (3 TABLETS AT NIGHT)
  3. PHENYTOIN SODIUM EXTENDED [Suspect]
     Active Substance: PHENYTOIN SODIUM
     Indication: PETIT MAL EPILEPSY
     Dosage: (CHANGED FROM 4 TO 3 TABLETS AT NIGHT)
     Route: 048
     Dates: end: 201702
  4. TOPAMAX [Concomitant]
     Active Substance: TOPIRAMATE
     Dosage: (CHANGED FROM 3 TO 4 TABLETS AT NIGHT)

REACTIONS (7)
  - Fatigue [Recovered/Resolved]
  - Menstrual disorder [Recovered/Resolved]
  - Drug ineffective for unapproved indication [Recovered/Resolved]
  - Headache [Recovered/Resolved]
  - Malaise [Recovered/Resolved]
  - Product substitution issue [Recovered/Resolved]
  - Dizziness [Recovered/Resolved]
